FAERS Safety Report 8313005-5 (Version None)
Quarter: 2012Q2

REPORT INFORMATION
  Report Type: 
  Country: None (occurrence: None)
  Receive Date: 20120426
  Receipt Date: 20120423
  Transmission Date: 20120825
  Serious: Yes (Hospitalization, Other)
  Sender: FDA-Public Use
  Company Number: US-AMGEN-USASP2012024129

PATIENT
  Age: 78 Year
  Sex: Female

DRUGS (14)
  1. SINGULAIR [Concomitant]
  2. ALVESCO [Concomitant]
  3. SPIRIVA [Concomitant]
  4. MAVIK [Concomitant]
  5. CARDIZEM [Concomitant]
  6. PROLIA [Suspect]
     Indication: OSTEOPOROSIS POSTMENOPAUSAL
     Dosage: UNK UNK, Q6MO
  7. LIPITOR [Concomitant]
  8. VITAMIN D [Concomitant]
  9. MULTIVITAMIN                       /00097801/ [Concomitant]
  10. NITROGLYCERIN [Concomitant]
  11. MAGNESIUM [Concomitant]
     Dosage: UNK
  12. FISH OIL [Concomitant]
  13. VITAMIN C                          /00008001/ [Concomitant]
  14. CALCIUM [Concomitant]

REACTIONS (7)
  - PAIN IN EXTREMITY [None]
  - FALL [None]
  - SPINAL FRACTURE [None]
  - BONE PAIN [None]
  - BURNING SENSATION [None]
  - MUSCLE SPASMS [None]
  - PARAESTHESIA [None]
